FAERS Safety Report 22211382 (Version 2)
Quarter: 2023Q2

REPORT INFORMATION
  Report Type: Other
  Country: FR (occurrence: FR)
  Receive Date: 20230414
  Receipt Date: 20230427
  Transmission Date: 20230722
  Serious: Yes (Life-Threatening, Hospitalization)
  Sender: FDA-Public Use
  Company Number: FR-ALVOGEN-2023091064

PATIENT
  Age: 53 Year
  Sex: Female

DRUGS (2)
  1. VENLAFAXINE [Suspect]
     Active Substance: VENLAFAXINE HYDROCHLORIDE
     Indication: Product used for unknown indication
     Dosage: INGESTED APPROX. 20 H BEFORE EXAMINATION
  2. OXAZEPAM [Suspect]
     Active Substance: OXAZEPAM
     Indication: Product used for unknown indication
     Dosage: INGESTED APPROX. 20 H BEFORE EXAMINATION

REACTIONS (13)
  - Cardiac failure [Unknown]
  - Cardiogenic shock [Unknown]
  - Toxicity to various agents [Unknown]
  - Coma [Unknown]
  - Respiratory distress [Unknown]
  - Pneumonia aspiration [Unknown]
  - Multiple organ dysfunction syndrome [Unknown]
  - Enterobacter pneumonia [Unknown]
  - Haemorrhage [Unknown]
  - Acute kidney injury [Unknown]
  - Anuria [Unknown]
  - Mydriasis [Unknown]
  - Hypotension [Unknown]
